FAERS Safety Report 5657158-6 (Version None)
Quarter: 2008Q1

REPORT INFORMATION
  Report Type: 
  Country: None (occurrence: None)
  Receive Date: 20080310
  Receipt Date: 20080228
  Transmission Date: 20080703
  Serious: Yes (Hospitalization, Other)
  Sender: FDA-Public Use
  Company Number: US-MERCK-0705USA02815

PATIENT
  Age: 70 Year
  Sex: Female

DRUGS (2)
  1. FOSAMAX [Suspect]
     Indication: OSTEOPOROSIS
     Route: 048
     Dates: start: 19970101
  2. HORMONES (UNSPECIFIED) [Concomitant]
     Route: 065
     Dates: start: 19880101, end: 20050101

REACTIONS (6)
  - DEPRESSION [None]
  - HERPES ZOSTER [None]
  - OSTEOMYELITIS [None]
  - OSTEONECROSIS [None]
  - PELVIC FRACTURE [None]
  - WEIGHT DECREASED [None]
